FAERS Safety Report 17875630 (Version 2)
Quarter: 2020Q2

REPORT INFORMATION
  Report Type: Spontaneous
  Country: IN (occurrence: IN)
  Receive Date: 20200609
  Receipt Date: 20200618
  Transmission Date: 20200714
  Serious: Yes (Death)
  Sender: FDA-Public Use
  Company Number: IN-PFIZER INC-2020049530

PATIENT
  Age: 52 Year
  Sex: Male

DRUGS (2)
  1. INLYTA [Suspect]
     Active Substance: AXITINIB
     Indication: METASTATIC RENAL CELL CARCINOMA
     Dosage: 5 MG, 2X/DAY
     Route: 048
     Dates: start: 20190829
  2. INLYTA [Suspect]
     Active Substance: AXITINIB
     Dosage: 5 MG, 1X/DAY (OD)
     Route: 048

REACTIONS (7)
  - Blood pressure increased [Not Recovered/Not Resolved]
  - Asthenia [Unknown]
  - Decreased appetite [Unknown]
  - Pain [Unknown]
  - Neoplasm progression [Fatal]
  - Vomiting [Unknown]
  - Nausea [Unknown]

NARRATIVE: CASE EVENT DATE: 20200531
